FAERS Safety Report 19632655 (Version 9)
Quarter: 2022Q2

REPORT INFORMATION
  Report Type: Report from Study
  Country: US (occurrence: US)
  Receive Date: 20210728
  Receipt Date: 20220407
  Transmission Date: 20220721
  Serious: Yes (Other)
  Sender: FDA-Public Use
  Company Number: US-NOVARTISPH-NVSC2021US151570

PATIENT
  Sex: Female

DRUGS (7)
  1. KESIMPTA [Suspect]
     Active Substance: OFATUMUMAB
     Indication: Multiple sclerosis
     Dosage: 20 MG, QW
     Route: 058
  2. KESIMPTA [Suspect]
     Active Substance: OFATUMUMAB
     Dosage: 20 MG, QW
     Route: 058
  3. KESIMPTA [Suspect]
     Active Substance: OFATUMUMAB
     Dosage: 20 MG, QMO (20 MG/0.4 ML)
     Route: 058
  4. KESIMPTA [Suspect]
     Active Substance: OFATUMUMAB
     Dosage: 20 MG, QMO
     Route: 058
  5. VITAMIN C [Concomitant]
     Active Substance: ASCORBIC ACID
     Indication: Product used for unknown indication
     Dosage: UNK
     Route: 065
  6. BACTRIM [Concomitant]
     Active Substance: SULFAMETHOXAZOLE\TRIMETHOPRIM
     Indication: Product used for unknown indication
     Dosage: UNK
     Route: 065
  7. CELEXA [Concomitant]
     Active Substance: CITALOPRAM HYDROBROMIDE
     Indication: Product used for unknown indication
     Dosage: UNK
     Route: 065

REACTIONS (26)
  - Hypoacusis [Recovered/Resolved]
  - Deafness [Unknown]
  - Multiple sclerosis relapse [Unknown]
  - Insomnia [Unknown]
  - Fatigue [Unknown]
  - Trigeminal neuralgia [Unknown]
  - Influenza like illness [Unknown]
  - Nausea [Unknown]
  - Headache [Unknown]
  - Pyrexia [Unknown]
  - Vision blurred [Unknown]
  - Dry mouth [Unknown]
  - Band sensation [Recovered/Resolved]
  - Lhermitte^s sign [Unknown]
  - Anxiety [Unknown]
  - Feeling hot [Unknown]
  - Depression [Unknown]
  - Asthenia [Unknown]
  - Migraine [Unknown]
  - Sluggishness [Unknown]
  - Fall [Unknown]
  - Sensory loss [Unknown]
  - Peroneal nerve palsy [Not Recovered/Not Resolved]
  - Hypoaesthesia [Unknown]
  - Heart rate increased [Unknown]
  - Product dose omission issue [Unknown]
